FAERS Safety Report 17004435 (Version 2)
Quarter: 2021Q2

REPORT INFORMATION
  Report Type: Spontaneous
  Country: TN (occurrence: TN)
  Receive Date: 20191107
  Receipt Date: 20210405
  Transmission Date: 20210716
  Serious: Yes (Other)
  Sender: FDA-Public Use
  Company Number: TN-GLAXOSMITHKLINE-TN2019EME197210

PATIENT
  Age: 49 Year
  Sex: Male

DRUGS (1)
  1. ACITRETIN. [Suspect]
     Active Substance: ACITRETIN
     Indication: PUSTULAR PSORIASIS
     Dosage: UNK

REACTIONS (4)
  - Malignant melanoma in situ [Unknown]
  - Psoriatic arthropathy [Unknown]
  - Squamous cell carcinoma [Unknown]
  - Drug ineffective [Unknown]
